FAERS Safety Report 5614651-X (Version None)
Quarter: 2008Q1

REPORT INFORMATION
  Report Type: 
  Country: None (occurrence: None)
  Receive Date: 20080130
  Receipt Date: 20080102
  Transmission Date: 20080703
  Serious: Yes (Other)
  Sender: FDA-Public Use
  Company Number: 1-15645811

PATIENT
  Age: 47 Year
  Sex: Female

DRUGS (7)
  1. KETOROLAC TROMETHAMINE [Suspect]
     Indication: BACK PAIN
     Dosage: 60 MG, INTRAMUSCULAR
     Route: 030
     Dates: start: 20071015, end: 20071015
  2. KETOROLAC TROMETHAMINE [Suspect]
     Indication: PAIN IN EXTREMITY
     Dosage: 60 MG, INTRAMUSCULAR
     Route: 030
     Dates: start: 20071015, end: 20071015
  3. TRAMADOL HCL [Concomitant]
  4. LODINE [Concomitant]
  5. THYROID SUPPLEMENT [Concomitant]
  6. HYDROCHLOROTHIAZIDE [Concomitant]
  7. MICROGESTIN (NORETHINDRONE ACETATE AND ETHINYL ESTRADIOL) [Concomitant]

REACTIONS (6)
  - DYSPHASIA [None]
  - DYSPHEMIA [None]
  - PHOTOPHOBIA [None]
  - SPEECH DISORDER [None]
  - SWOLLEN TONGUE [None]
  - TREMOR [None]
